FAERS Safety Report 5920342-8 (Version None)
Quarter: 2008Q4

REPORT INFORMATION
  Report Type: 
  Country: None (occurrence: None)
  Receive Date: 20081016
  Receipt Date: 20081007
  Transmission Date: 20090506
  Serious: Yes (Other)
  Sender: FDA-Public Use
  Company Number: PHHY2008VE22888

PATIENT
  Sex: Female

DRUGS (4)
  1. EXELON [Suspect]
     Dosage: 4.6 MG
     Route: 062
  2. ZYPREXA [Concomitant]
     Dosage: 5 MG, QD
  3. REMINALET [Concomitant]
     Dosage: 5 MG, QD
  4. ACCUPRIL [Concomitant]
     Dosage: 10 MG, QD

REACTIONS (2)
  - DRUG ABUSE [None]
  - SYNCOPE [None]
